FAERS Safety Report 5522028-0 (Version None)
Quarter: 2007Q4

REPORT INFORMATION
  Report Type: 
  Country: None (occurrence: None)
  Receive Date: 20071120
  Receipt Date: 20071112
  Transmission Date: 20080405
  Serious: Yes (Other)
  Sender: FDA-Public Use
  Company Number: US-KINGPHARMUSA00001-K200701460

PATIENT

DRUGS (1)
  1. ALTACE [Suspect]
     Dosage: 1.25 MG, QD

REACTIONS (2)
  - GASTRECTOMY [None]
  - GASTRIC CANCER [None]
